FAERS Safety Report 10484839 (Version 2)
Quarter: 2014Q4

REPORT INFORMATION
  Report Type: Report from Study
  Country: US (occurrence: US)
  Receive Date: 20140930
  Receipt Date: 20141107
  Transmission Date: 20150528
  Serious: Yes (Other)
  Sender: FDA-Public Use
  Company Number: US-BRISTOL-MYERS SQUIBB COMPANY-21434402

PATIENT
  Age: 64 Year
  Sex: Male
  Weight: 91 kg

DRUGS (4)
  1. ADRIAMYCIN [Suspect]
     Active Substance: DOXORUBICIN HYDROCHLORIDE
     Indication: PLASMA CELL MYELOMA
     Dosage: FREQUENCY: EVERY DAY X 4 DAYS
     Route: 042
     Dates: start: 20120904, end: 20120909
  2. CYTOXAN [Suspect]
     Active Substance: CYCLOPHOSPHAMIDE
     Indication: PLASMA CELL MYELOMA
     Dosage: FREQUENCY: EVERY 12 HRS X 4 DAYS
     Route: 042
     Dates: start: 20120904, end: 20120909
  3. DEXAMETHASONE. [Suspect]
     Active Substance: DEXAMETHASONE
     Indication: PLASMA CELL MYELOMA
     Dosage: EVERY DAY X 4 DAYS
     Route: 048
     Dates: start: 20120904, end: 20120909
  4. MESNA. [Suspect]
     Active Substance: MESNA
     Indication: PLASMA CELL MYELOMA
     Dosage: FREQUENCY: EVERY DAY X. 4 DAYS
     Route: 042
     Dates: start: 20120904, end: 20120909

REACTIONS (1)
  - Sepsis [Recovered/Resolved]

NARRATIVE: CASE EVENT DATE: 20120921
